FAERS Safety Report 16140866 (Version 1)
Quarter: 2019Q2

REPORT INFORMATION
  Report Type: Spontaneous
  Country: US (occurrence: US)
  Receive Date: 20190401
  Receipt Date: 20190401
  Transmission Date: 20190711
  Serious: Yes (Other)
  Sender: FDA-Public Use
  Company Number: US-MYLANLABS-2019M1027716

PATIENT
  Sex: Female

DRUGS (2)
  1. CYCLOBENZAPRINE HYDROCHLORIDE TABLETS, USP [Suspect]
     Active Substance: CYCLOBENZAPRINE
     Indication: INFLAMMATION
     Dosage: UNK
     Dates: start: 2018
  2. CYCLOBENZAPRINE HYDROCHLORIDE TABLETS, USP [Suspect]
     Active Substance: CYCLOBENZAPRINE
     Indication: HYPERSENSITIVITY

REACTIONS (10)
  - Migraine [Unknown]
  - Visual impairment [Unknown]
  - Housebound [Unknown]
  - Anaphylactic reaction [Recovered/Resolved]
  - Weight increased [Unknown]
  - Rash [Unknown]
  - Vertigo [Unknown]
  - Heart rate increased [Unknown]
  - Dyspnoea [Unknown]
  - Hypersensitivity [Unknown]

NARRATIVE: CASE EVENT DATE: 20190320
